FAERS Safety Report 4459554-1 (Version None)
Quarter: 2004Q3

REPORT INFORMATION
  Report Type: 
  Country: None (occurrence: None)
  Receive Date: 20040927
  Receipt Date: 20040922
  Transmission Date: 20050211
  Serious: Yes (Hospitalization)
  Sender: FDA-Public Use
  Company Number: GB-MERCK-0409GBR00218

PATIENT

DRUGS (1)
  1. CANCIDAS [Suspect]
     Route: 042

REACTIONS (1)
  - INJECTION SITE EXTRAVASATION [None]
